FAERS Safety Report 10587104 (Version 2)
Quarter: 2014Q4

REPORT INFORMATION
  Report Type: Spontaneous
  Country: FR (occurrence: FR)
  Receive Date: 20141117
  Receipt Date: 20141126
  Transmission Date: 20150529
  Serious: Yes (Hospitalization, Other)
  Sender: FDA-Public Use
  Company Number: FR-ELI_LILLY_AND_COMPANY-FR201411001503

PATIENT
  Age: 44 Year
  Sex: Male

DRUGS (9)
  1. ESBRIET [Suspect]
     Active Substance: PIRFENIDONE
     Indication: PULMONARY FIBROSIS
     Dosage: 2403 MG, QD
     Route: 048
     Dates: start: 20140521, end: 20140806
  2. TERCIAN [Suspect]
     Active Substance: CYAMEMAZINE
     Indication: DEPRESSION
  3. TERCIAN [Suspect]
     Active Substance: CYAMEMAZINE
     Indication: ANXIETY
     Dosage: 25 MG, TID
     Route: 048
  4. MIOREL [Suspect]
     Active Substance: ORPHENADRINE
     Indication: MUSCLE SPASMS
     Dosage: 4 MG, QID
     Route: 048
     Dates: start: 20140624, end: 20140725
  5. PARIET [Suspect]
     Active Substance: RABEPRAZOLE SODIUM
     Indication: PRODUCT USED FOR UNKNOWN INDICATION
     Dosage: 10 MG, QD
     Route: 048
     Dates: start: 20140715, end: 20140722
  6. CYMBALTA [Suspect]
     Active Substance: DULOXETINE HYDROCHLORIDE
     Indication: DEPRESSION
     Dosage: 60 MG, QD
     Route: 048
     Dates: start: 201405, end: 20140801
  7. ALPRAZOLAM. [Suspect]
     Active Substance: ALPRAZOLAM
     Indication: ANXIETY
     Dosage: 0.25 MG, TID
     Route: 048
     Dates: start: 20140707
  8. RISPERDAL [Suspect]
     Active Substance: RISPERIDONE
     Indication: PRODUCT USED FOR UNKNOWN INDICATION
     Dosage: 4 MG, QD
     Route: 048
     Dates: start: 20140110, end: 20140721
  9. ZOLPIDEM [Suspect]
     Active Substance: ZOLPIDEM\ZOLPIDEM TARTRATE
     Indication: INSOMNIA
     Dosage: 0.25 MG, TID
     Route: 048

REACTIONS (18)
  - Pyrexia [Not Recovered/Not Resolved]
  - Melaena [Unknown]
  - Malnutrition [Unknown]
  - Bone marrow failure [Unknown]
  - Thrombocytopenia [Unknown]
  - Weight decreased [Unknown]
  - Ejection fraction decreased [Unknown]
  - Nasopharyngitis [Unknown]
  - Neutropenia [Recovered/Resolved]
  - Depression [Unknown]
  - Inflammation [Unknown]
  - Pulmonary fibrosis [Unknown]
  - Asthenia [Unknown]
  - Brain stem thrombosis [Unknown]
  - Meningitis aseptic [Unknown]
  - C-reactive protein increased [Not Recovered/Not Resolved]
  - Red blood cell count decreased [Unknown]
  - Respiratory disorder [Unknown]

NARRATIVE: CASE EVENT DATE: 20140704
